FAERS Safety Report 24322260 (Version 3)
Quarter: 2024Q4

REPORT INFORMATION
  Report Type: Spontaneous
  Country: US (occurrence: US)
  Receive Date: 20240916
  Receipt Date: 20241017
  Transmission Date: 20250115
  Serious: No
  Sender: AMGEN
  Company Number: US-AMGEN-USASP2024182710

PATIENT
  Age: 49 Year
  Sex: Female

DRUGS (1)
  1. KANJINTI [Suspect]
     Active Substance: TRASTUZUMAB-ANNS
     Indication: Breast cancer
     Dosage: UNK UNK, Q3WK
     Route: 065
     Dates: start: 20240802

REACTIONS (2)
  - Intercepted product preparation error [Unknown]
  - Product communication issue [Unknown]

NARRATIVE: CASE EVENT DATE: 20240903
